FAERS Safety Report 9915649 (Version 1)
Quarter: 2014Q1

REPORT INFORMATION
  Report Type: Report from Study
  Country: US (occurrence: US)
  Receive Date: 20140221
  Receipt Date: 20140221
  Transmission Date: 20141002
  Serious: Yes (Other)
  Sender: FDA-Public Use
  Company Number: US-ROCHE-1348454

PATIENT
  Sex: 0

DRUGS (8)
  1. SAQUINAVIR [Suspect]
     Indication: HIV INFECTION
     Route: 065
  2. NELFINAVIR [Suspect]
     Indication: HIV INFECTION
     Route: 065
  3. AMPRENAVIR [Suspect]
     Indication: HIV INFECTION
     Route: 065
  4. ABACAVIR SULFATE [Suspect]
     Indication: HIV INFECTION
     Route: 065
  5. EFAVIRENZ (NON-ROCHE NON-COMPARATOR) [Suspect]
     Indication: HIV INFECTION
     Dosage: ONCE DAILY
     Route: 065
  6. ADEFOVIR DIPIVOXIL [Suspect]
     Indication: HIV INFECTION
     Dosage: ONCE DAILY
     Route: 065
  7. L-CARNITINE [Suspect]
     Indication: HIV INFECTION
     Dosage: ONCE DAILY
     Route: 065
  8. INDINAVIR [Suspect]
     Indication: HIV INFECTION
     Route: 065

REACTIONS (3)
  - Hypertriglyceridaemia [Unknown]
  - Hypophosphataemia [Unknown]
  - Gastrointestinal disorder [Unknown]
